FAERS Safety Report 7675357-9 (Version None)
Quarter: 2011Q3

REPORT INFORMATION
  Report Type: 
  Country: None (occurrence: None)
  Receive Date: 20110810
  Receipt Date: 20110802
  Transmission Date: 20111222
  Serious: Yes (Death, Life-Threatening, Hospitalization, Other)
  Sender: FDA-Public Use
  Company Number: FR-PFIZER INC-2011075968

PATIENT
  Age: 64 Year
  Sex: Male

DRUGS (9)
  1. CORDARONE [Suspect]
     Indication: ATRIAL FIBRILLATION
     Dosage: 200 MG DAILY
     Route: 048
     Dates: end: 20110119
  2. DRONEDARONE [Suspect]
     Indication: ATRIAL FIBRILLATION
     Dosage: 400 MG, 2X/DAY
     Route: 048
     Dates: start: 20110119, end: 20110222
  3. BISOPROLOL [Concomitant]
  4. FUROSEMIDE [Concomitant]
  5. POTASSIUM CHLORIDE [Concomitant]
  6. PREVISCAN [Concomitant]
  7. LEVOTHYROXINE SODIUM [Concomitant]
  8. ZESTRIL [Concomitant]
  9. CORDARONE [Suspect]
     Dosage: 400 MG DAILY
     Route: 048
     Dates: end: 20110119

REACTIONS (2)
  - INTERSTITIAL LUNG DISEASE [None]
  - PULMONARY ARTERIAL HYPERTENSION [None]
